FAERS Safety Report 21673684 (Version 1)
Quarter: 2022Q4

REPORT INFORMATION
  Report Type: Report from Study
  Country: US (occurrence: US)
  Receive Date: 20221202
  Receipt Date: 20221202
  Transmission Date: 20230113
  Serious: No
  Sender: FDA-Public Use
  Company Number: US-ABBVIE-4173488

PATIENT
  Sex: Female

DRUGS (2)
  1. HUMIRA [Suspect]
     Active Substance: ADALIMUMAB
     Indication: Psoriatic arthropathy
     Dosage: 40 MG; EVENT ILLNESS STARTED ON AN UNKNOWN DATE IN 2022
     Route: 058
     Dates: start: 20220205
  2. HUMIRA [Suspect]
     Active Substance: ADALIMUMAB
     Dosage: 40 MG
     Route: 058

REACTIONS (4)
  - Arthritis [Unknown]
  - Pain [Unknown]
  - Illness [Unknown]
  - Grip strength decreased [Unknown]
